FAERS Safety Report 8775122 (Version 2)
Quarter: 2012Q4

REPORT INFORMATION
  Report Type: 
  Country: US (occurrence: US)
  Receive Date: 20120910
  Receipt Date: 20121017
  Transmission Date: 20130627
  Serious: No
  Sender: FDA-Public Use
  Company Number: US-009507513-1209USA001663

PATIENT
  Sex: Female

DRUGS (1)
  1. IMPLANON [Suspect]
     Dosage: 68 mg, UNK
     Dates: start: 20120320, end: 20120823

REACTIONS (2)
  - Unintended pregnancy [Unknown]
  - Inappropriate schedule of drug administration [Unknown]
